FAERS Safety Report 16198638 (Version 1)
Quarter: 2019Q2

REPORT INFORMATION
  Report Type: Report from Study
  Country: US (occurrence: US)
  Receive Date: 20190415
  Receipt Date: 20190415
  Transmission Date: 20190711
  Serious: Yes (Other)
  Sender: FDA-Public Use
  Company Number: US-JNJFOC-20190208563

PATIENT
  Age: 77 Year
  Sex: Male

DRUGS (15)
  1. FINASTERIDE. [Concomitant]
     Active Substance: FINASTERIDE
  2. IMBRUVICA [Suspect]
     Active Substance: IBRUTINIB
     Indication: CHRONIC LYMPHOCYTIC LEUKAEMIA
     Route: 048
     Dates: start: 20190319
  3. METFORMIN HCL [Concomitant]
     Active Substance: METFORMIN HYDROCHLORIDE
  4. ZOCOR [Concomitant]
     Active Substance: SIMVASTATIN
  5. IMBRUVICA [Suspect]
     Active Substance: IBRUTINIB
     Indication: CHRONIC LYMPHOCYTIC LEUKAEMIA
     Route: 048
     Dates: start: 20170207, end: 20180424
  6. ALEVE [Concomitant]
     Active Substance: NAPROXEN SODIUM
  7. IMBRUVICA [Suspect]
     Active Substance: IBRUTINIB
     Indication: CHRONIC LYMPHOCYTIC LEUKAEMIA
     Route: 048
     Dates: start: 20180425, end: 20190109
  8. ASPIRIN 81 [Concomitant]
     Active Substance: ASPIRIN
  9. AMARYL [Concomitant]
     Active Substance: GLIMEPIRIDE
  10. LISINOPRIL + HIDROCLOROTIAZIDA [Concomitant]
     Active Substance: HYDROCHLOROTHIAZIDE\LISINOPRIL
  11. CENTRUM SILVER [Concomitant]
     Active Substance: MINERALS\VITAMINS
  12. LATANOPROST. [Concomitant]
     Active Substance: LATANOPROST
  13. IMBRUVICA [Suspect]
     Active Substance: IBRUTINIB
     Indication: CHRONIC LYMPHOCYTIC LEUKAEMIA
     Route: 048
     Dates: start: 20190110, end: 20190318
  14. IMBRUVICA [Suspect]
     Active Substance: IBRUTINIB
     Indication: CHRONIC LYMPHOCYTIC LEUKAEMIA
     Route: 048
     Dates: start: 20170202, end: 20180424
  15. JARDIANCE [Concomitant]
     Active Substance: EMPAGLIFLOZIN

REACTIONS (7)
  - Pleural effusion [Unknown]
  - Peripheral swelling [Unknown]
  - Blister [Unknown]
  - Skin warm [Unknown]
  - Incorrect dose administered [Unknown]
  - Off label use [Unknown]
  - Inappropriate schedule of product administration [Unknown]

NARRATIVE: CASE EVENT DATE: 20170207
